FAERS Safety Report 18312881 (Version 1)
Quarter: 2020Q3

REPORT INFORMATION
  Report Type: Spontaneous
  Country: SI (occurrence: SI)
  Receive Date: 20200925
  Receipt Date: 20200925
  Transmission Date: 20201103
  Serious: Yes (Other)
  Sender: FDA-Public Use
  Company Number: SI-ASTRAZENECA-2020SF19487

PATIENT
  Sex: Female

DRUGS (7)
  1. PALBOCICLIB [Suspect]
     Active Substance: PALBOCICLIB
     Indication: BREAST CANCER METASTATIC
     Dosage: UNKNOWN
     Route: 048
     Dates: start: 201810
  2. GEMCITABINE. [Suspect]
     Active Substance: GEMCITABINE
     Indication: BREAST CANCER METASTATIC
     Dosage: UNKNOWN
     Route: 065
     Dates: start: 201912
  3. EXEMESTANE. [Suspect]
     Active Substance: EXEMESTANE
     Indication: BREAST CANCER METASTATIC
     Dosage: UNKNOWN
     Route: 065
     Dates: start: 202005
  4. CAPECITABINE. [Suspect]
     Active Substance: CAPECITABINE
     Indication: BREAST CANCER METASTATIC
     Dosage: UNKNOWN
     Route: 065
     Dates: start: 201908
  5. CISPLATIN. [Suspect]
     Active Substance: CISPLATIN
     Indication: BREAST CANCER METASTATIC
     Dosage: UNKNOWN
     Route: 065
     Dates: start: 201912
  6. FULVESTRANT. [Suspect]
     Active Substance: FULVESTRANT
     Indication: BREAST CANCER METASTATIC
     Dosage: UNKNOWN
     Route: 030
     Dates: start: 201810
  7. LETROZOLE. [Suspect]
     Active Substance: LETROZOLE
     Indication: BREAST CANCER METASTATIC
     Dosage: UNKNOWN
     Route: 065
     Dates: start: 201710

REACTIONS (3)
  - Metastases to peritoneum [Unknown]
  - Metastases to bone [Unknown]
  - Metastases to skin [Unknown]

NARRATIVE: CASE EVENT DATE: 201810
